APPROVED DRUG PRODUCT: FAMOTIDINE
Active Ingredient: FAMOTIDINE
Strength: 20MG
Dosage Form/Route: TABLET;ORAL
Application: A218461 | Product #002
Applicant: GRAVITI PHARMACEUTICALS PRIVATE LTD
Approved: Mar 14, 2024 | RLD: No | RS: No | Type: OTC